FAERS Safety Report 6680951-8 (Version None)
Quarter: 2010Q2

REPORT INFORMATION
  Report Type: 
  Country: None (occurrence: None)
  Receive Date: 20100414
  Receipt Date: 20100412
  Transmission Date: 20101027
  Serious: Yes (Other)
  Sender: FDA-Public Use
  Company Number: JP-BAYER-201011680BYL

PATIENT
  Age: 89 Year
  Sex: Male
  Weight: 55 kg

DRUGS (10)
  1. NEXAVAR [Suspect]
     Indication: HEPATIC NEOPLASM MALIGNANT
     Dosage: TOTAL DAILY DOSE: 400 G  UNIT DOSE: 200 MG
     Route: 048
     Dates: start: 20100210
  2. URSO 250 [Concomitant]
     Route: 048
     Dates: start: 20061129
  3. PROMAC [Concomitant]
     Route: 048
     Dates: start: 20080204
  4. AMARYL [Concomitant]
     Route: 048
     Dates: start: 20040109
  5. VITAMEDIN [Concomitant]
     Route: 065
     Dates: start: 20090415
  6. ONON [Concomitant]
     Route: 048
     Dates: start: 20020731
  7. HOKUNALIN:TAPE [Concomitant]
     Route: 062
     Dates: start: 20020731
  8. THEO-DUR [Concomitant]
     Route: 048
     Dates: start: 20020731
  9. NIVADIL [Concomitant]
     Route: 048
     Dates: start: 20100212
  10. UREPEARL [Concomitant]
     Route: 061
     Dates: start: 20100212

REACTIONS (4)
  - FATIGUE [None]
  - HAEMOLYTIC ANAEMIA [None]
  - HYPERTENSION [None]
  - PALMAR-PLANTAR ERYTHRODYSAESTHESIA SYNDROME [None]
